FAERS Safety Report 6829815-7 (Version None)
Quarter: 2010Q3

REPORT INFORMATION
  Report Type: 
  Country: None (occurrence: None)
  Receive Date: 20100706
  Receipt Date: 20100621
  Transmission Date: 20110219
  Serious: Yes (Death)
  Sender: FDA-Public Use
  Company Number: 20108959

PATIENT
  Age: 61 Year
  Sex: Male

DRUGS (1)
  1. LIORESAL [Suspect]
     Indication: MUSCLE SPASTICITY
     Dosage: 100.2 MCG, DAILY, INTRATHECAL
     Route: 037

REACTIONS (3)
  - LUMBAR RADICULOPATHY [None]
  - LUNG CANCER METASTATIC [None]
  - PAIN [None]
